FAERS Safety Report 10285939 (Version 1)
Quarter: 2014Q3

REPORT INFORMATION
  Report Type: Spontaneous
  Country: US (occurrence: None)
  Receive Date: 20140703
  Receipt Date: 20140703
  Transmission Date: 20150326
  Serious: Yes (Death, Hospitalization)
  Sender: FDA-Public Use
  Company Number: 2014HINLIT0589

PATIENT
  Age: 17 Year
  Sex: Female

DRUGS (3)
  1. LITHIUM [Suspect]
     Active Substance: LITHIUM CARBONATE
     Indication: AFFECTIVE DISORDER
  2. TOPIRAMATE (TOPIRAMATE) [Suspect]
     Active Substance: TOPIRAMATE
     Indication: AFFECTIVE DISORDER
  3. 25I-NBOME (25I-NBOME) [Suspect]
     Active Substance: 25I-NBOME

REACTIONS (11)
  - Toxicity to various agents [None]
  - Renal failure acute [None]
  - Metabolic acidosis [None]
  - Brain oedema [None]
  - Hyperthermia [None]
  - Hypokalaemia [None]
  - Serotonin syndrome [None]
  - Transaminases increased [None]
  - Rhabdomyolysis [None]
  - Status epilepticus [None]
  - Hypocalcaemia [None]
